FAERS Safety Report 4350556-2 (Version None)
Quarter: 2004Q2

REPORT INFORMATION
  Report Type: 
  Country: None (occurrence: None)
  Receive Date: 20040430
  Receipt Date: 20040427
  Transmission Date: 20050107
  Serious: Yes (Other)
  Sender: FDA-Public Use
  Company Number: US-BRISTOL-MYERS SQUIBB COMPANY-12572467

PATIENT
  Age: 45 Year
  Sex: Male
  Weight: 67 kg

DRUGS (5)
  1. BLINDED: EFAVIRENZ [Suspect]
     Indication: HIV INFECTION
     Dosage: AT HOUR OF SLEEP
     Route: 048
     Dates: start: 20020124
  2. TRIZIVIR [Suspect]
     Indication: HIV INFECTION
     Route: 048
     Dates: start: 20020124
  3. PERCOCET [Concomitant]
     Dates: start: 20020625
  4. NORTRIPTYLINE HCL [Concomitant]
     Dates: start: 20020908
  5. COLACE [Concomitant]
     Dates: start: 20030131

REACTIONS (6)
  - BLOOD ALKALINE PHOSPHATASE INCREASED [None]
  - BLOOD CHOLESTEROL INCREASED [None]
  - BLOOD TRIGLYCERIDES INCREASED [None]
  - GAMMA-GLUTAMYLTRANSFERASE INCREASED [None]
  - HYPERLIPIDAEMIA [None]
  - LOW DENSITY LIPOPROTEIN INCREASED [None]
